FAERS Safety Report 9948817 (Version 1)
Quarter: 2014Q1

REPORT INFORMATION
  Report Type: Spontaneous
  Country: DE (occurrence: DE)
  Receive Date: 20140304
  Receipt Date: 20140304
  Transmission Date: 20141002
  Serious: Yes (Congenital Anomaly)
  Sender: FDA-Public Use
  Company Number: DE-RANBAXY-2014RR-78435

PATIENT
  Age: 1 Day
  Sex: Male

DRUGS (4)
  1. SERTRALINE [Suspect]
     Indication: DEPRESSION
     Dosage: 100 MG/DAY, DURING GESTATIONAL WEEKS 0-34.5
     Route: 064
     Dates: start: 20120407, end: 20121206
  2. LAMOTRIGINE [Suspect]
     Indication: BIPOLAR DISORDER
     Dosage: 200 MG/DAY, HIGHER DOSE OF 200 MG/DAY SINCE WEEK 15, DURING GESTATIONAL WEEKS 0-34.5
     Route: 064
     Dates: start: 20120407, end: 20121206
  3. L-THYROXIN HENNING [Concomitant]
     Indication: AUTOIMMUNE THYROIDITIS
     Dosage: 75 UG/DAY, DURING GESTATIONAL WEEKS 0-34.5
     Route: 064
     Dates: start: 20120407, end: 20121206
  4. CORDES BPO 5 [Concomitant]
     Indication: ACNE
     Dosage: UNK
     Route: 064
     Dates: start: 20120407, end: 20120518

REACTIONS (1)
  - Polydactyly [Recovered/Resolved]
